FAERS Safety Report 8254731-6 (Version None)
Quarter: 2012Q2

REPORT INFORMATION
  Report Type: 
  Country: None (occurrence: None)
  Receive Date: 20120403
  Receipt Date: 20120323
  Transmission Date: 20120825
  Serious: Yes (Other)
  Sender: FDA-Public Use
  Company Number: PHEH2012US006605

PATIENT
  Sex: Male
  Weight: 124.26 kg

DRUGS (4)
  1. LISINOPRIL AND HYDROCHLOROTHIAZIDE [Concomitant]
     Dosage: 32.5 MG, DAILY
     Route: 048
  2. GLEEVEC [Suspect]
     Indication: GASTROINTESTINAL STROMAL TUMOUR
     Dosage: 400 MG, DAILY
     Route: 048
     Dates: start: 20110930
  3. GLEEVEC [Suspect]
     Dosage: 400 MG, DAILY
     Route: 048
     Dates: start: 20110713
  4. FEOSOL [Concomitant]
     Dosage: 1 DF, TID
     Route: 048

REACTIONS (4)
  - RENAL CELL CARCINOMA [None]
  - PAIN [None]
  - NEOPLASM MALIGNANT [None]
  - BLOOD PRESSURE INCREASED [None]
